FAERS Safety Report 25633777 (Version 1)
Quarter: 2025Q3

REPORT INFORMATION
  Report Type: Spontaneous
  Country: US (occurrence: None)
  Receive Date: 20250801
  Receipt Date: 20250801
  Transmission Date: 20251021
  Serious: No
  Sender: FDA-CTU
  Company Number: None

PATIENT

DRUGS (1)
  1. TENEX [Suspect]
     Active Substance: GUANFACINE HYDROCHLORIDE

REACTIONS (1)
  - Drug ineffective [None]
